FAERS Safety Report 12011138 (Version 1)
Quarter: 2016Q1

REPORT INFORMATION
  Report Type: Report from Study
  Country: US (occurrence: US)
  Receive Date: 20160205
  Receipt Date: 20160205
  Transmission Date: 20160526
  Serious: No
  Sender: FDA-Public Use
  Company Number: US-ABBVIE-15K-163-1447588-00

PATIENT
  Sex: Male

DRUGS (1)
  1. HUMIRA [Suspect]
     Active Substance: ADALIMUMAB
     Indication: RHEUMATOID ARTHRITIS
     Route: 065

REACTIONS (6)
  - Respiratory tract infection [Unknown]
  - Epistaxis [Recovered/Resolved]
  - Lip dry [Recovered/Resolved]
  - Nasopharyngitis [Recovered/Resolved]
  - Chapped lips [Recovered/Resolved]
  - Nasal mucosal disorder [Not Recovered/Not Resolved]

NARRATIVE: CASE EVENT DATE: 2012
